FAERS Safety Report 18300575 (Version 1)
Quarter: 2020Q3

REPORT INFORMATION
  Report Type: Spontaneous
  Country: US (occurrence: US)
  Receive Date: 20200923
  Receipt Date: 20200923
  Transmission Date: 20201103
  Serious: No
  Sender: FDA-Public Use
  Company Number: None

PATIENT
  Age: 73 Year
  Sex: Male

DRUGS (2)
  1. RIVAROXABAN (RIVAROXABAN 10MG TAB) [Suspect]
     Active Substance: RIVAROXABAN
     Indication: DEEP VEIN THROMBOSIS
     Dates: start: 20190120, end: 20200410
  2. RIVAROXABAN (RIVAROXABAN 10MG TAB) [Suspect]
     Active Substance: RIVAROXABAN
     Indication: PULMONARY EMBOLISM
     Dates: start: 20190120, end: 20200410

REACTIONS (4)
  - Diverticulum intestinal haemorrhagic [None]
  - Product substitution issue [None]
  - Deep vein thrombosis [None]
  - Gastric haemorrhage [None]

NARRATIVE: CASE EVENT DATE: 20200410
